FAERS Safety Report 8358657-9 (Version None)
Quarter: 2012Q2

REPORT INFORMATION
  Report Type: 
  Country: None (occurrence: None)
  Receive Date: 20120514
  Receipt Date: 20120508
  Transmission Date: 20120825
  Serious: Yes (Hospitalization)
  Sender: FDA-Public Use
  Company Number: US-MERCK-1104USA03724

PATIENT
  Age: 60 Year
  Sex: Female
  Weight: 75 kg

DRUGS (9)
  1. FOSAMAX [Suspect]
     Indication: MUSCLE SPASMS
     Route: 048
     Dates: start: 19980201, end: 20071201
  2. IRON (UNSPECIFIED) [Concomitant]
     Route: 065
     Dates: start: 19900101
  3. POTASSIUM (UNSPECIFIED) [Concomitant]
     Route: 065
     Dates: start: 19900101
  4. VITAMINS (UNSPECIFIED) [Concomitant]
     Route: 065
     Dates: start: 19900101
  5. MAGNESIUM (UNSPECIFIED) [Concomitant]
     Route: 065
     Dates: start: 19900101
  6. FOSAMAX [Suspect]
     Indication: OSTEOPOROSIS
     Route: 048
     Dates: start: 19980201, end: 20071201
  7. [THERAPY UNSPECIFIED] [Concomitant]
     Indication: RHEUMATOID ARTHRITIS
     Route: 065
  8. CALCIUM (UNSPECIFIED) [Concomitant]
     Route: 065
     Dates: start: 19900101
  9. RECLAST [Concomitant]
     Indication: OSTEOPOROSIS
     Route: 051
     Dates: start: 20080201

REACTIONS (37)
  - ATELECTASIS [None]
  - FOOT DEFORMITY [None]
  - OSTEOARTHRITIS [None]
  - HYPERKERATOSIS [None]
  - LOCALISED INFECTION [None]
  - DEPRESSION [None]
  - INTERVERTEBRAL DISC DEGENERATION [None]
  - ADVERSE DRUG REACTION [None]
  - BLADDER PROLAPSE [None]
  - NAUSEA [None]
  - MYOPATHY [None]
  - WHITE BLOOD CELL COUNT INCREASED [None]
  - PAIN IN EXTREMITY [None]
  - SECONDARY HYPOTHYROIDISM [None]
  - HYPERSENSITIVITY [None]
  - ARTHROPATHY [None]
  - TOXIC SHOCK SYNDROME [None]
  - RHEUMATOID ARTHRITIS [None]
  - CELLULITIS [None]
  - HYPERTENSION [None]
  - NEUROPATHY PERIPHERAL [None]
  - NEUROMA [None]
  - HYPERLIPIDAEMIA [None]
  - FEMUR FRACTURE [None]
  - MENISCUS LESION [None]
  - SKIN MASS [None]
  - SCIATICA [None]
  - ARTHRALGIA [None]
  - BUNION [None]
  - ANAEMIA POSTOPERATIVE [None]
  - URINARY TRACT INFECTION [None]
  - RENAL CYST [None]
  - EXOSTOSIS [None]
  - ABDOMINAL DISCOMFORT [None]
  - TARSAL TUNNEL SYNDROME [None]
  - SPINAL COLUMN STENOSIS [None]
  - ANXIETY [None]
